FAERS Safety Report 7575127-6 (Version None)
Quarter: 2011Q2

REPORT INFORMATION
  Report Type: 
  Country: None (occurrence: None)
  Receive Date: 20110627
  Receipt Date: 20110617
  Transmission Date: 20111010
  Serious: Yes (Disabling)
  Sender: FDA-Public Use
  Company Number: DE-UCBSA-034797

PATIENT
  Sex: Female
  Weight: 57 kg

DRUGS (3)
  1. TOPIRAMATE [Concomitant]
     Indication: EPILEPSY
     Dosage: SINCE 3 YEARS; DOSE PER INTAKE 50; DAILY DOSE 150
  2. LEVETIRACETAM [Suspect]
     Indication: EPILEPSY
     Dosage: 250 MG = 0.5 TABLET
     Dates: start: 20110601, end: 20110614
  3. TOPIRAMATE [Concomitant]
     Indication: MIGRAINE PROPHYLAXIS
     Dosage: SINCE 3 YEARS; DOSE PER INTAKE 50; DAILY DOSE 150

REACTIONS (7)
  - GASTRIC DISORDER [None]
  - GASTROOESOPHAGEAL REFLUX DISEASE [None]
  - DECREASED APPETITE [None]
  - NAUSEA [None]
  - ANXIETY [None]
  - PANIC ATTACK [None]
  - NIGHTMARE [None]
